FAERS Safety Report 7634093-5 (Version None)
Quarter: 2011Q3

REPORT INFORMATION
  Report Type: 
  Country: None (occurrence: None)
  Receive Date: 20110725
  Receipt Date: 20110713
  Transmission Date: 20111222
  Serious: No
  Sender: FDA-Public Use
  Company Number: US-B.I. PHARMACEUTICALS,INC./RIDGEFIELD-2011-BP-17652BP

PATIENT
  Sex: Female

DRUGS (6)
  1. THYROID TAB [Concomitant]
     Indication: HYPOTHYROIDISM
     Dates: start: 20100101
  2. PRADAXA [Suspect]
     Indication: ATRIAL FIBRILLATION
     Dosage: 300 MG
     Route: 048
     Dates: start: 20110629
  3. BYSTOLIC [Concomitant]
     Indication: ATRIAL FIBRILLATION
     Dates: start: 20080101
  4. VITAMIN D [Concomitant]
     Indication: OSTEOARTHRITIS
     Dates: start: 20110101
  5. DIGOXIN [Concomitant]
     Indication: ATRIAL FIBRILLATION
     Dates: start: 20080101
  6. MULTIVITAMIN [Concomitant]
     Indication: CATARACT
     Dates: start: 20080101

REACTIONS (3)
  - DYSURIA [None]
  - EYE SWELLING [None]
  - CONTUSION [None]
